FAERS Safety Report 22012052 (Version 2)
Quarter: 2023Q1

REPORT INFORMATION
  Report Type: Spontaneous
  Country: US (occurrence: US)
  Receive Date: 20230220
  Receipt Date: 20230227
  Transmission Date: 20230418
  Serious: No
  Sender: FDA-Public Use
  Company Number: US-Blueprint Medicines Corporation-SP-US-2023-000333

PATIENT
  Age: 51 Year
  Sex: Male

DRUGS (2)
  1. AYVAKIT [Suspect]
     Active Substance: AVAPRITINIB
     Indication: Systemic mastocytosis
     Route: 048
     Dates: start: 20190615
  2. AYVAKIT [Suspect]
     Active Substance: AVAPRITINIB
     Indication: Systemic mastocytosis
     Route: 048
     Dates: start: 20190615

REACTIONS (11)
  - COVID-19 [Recovering/Resolving]
  - Insomnia [Recovering/Resolving]
  - Secretion discharge [Unknown]
  - Staphylococcal infection [Unknown]
  - Thermal burn [Unknown]
  - Skin discolouration [Unknown]
  - Product use issue [Unknown]
  - Decreased appetite [Unknown]
  - Asthenia [Unknown]
  - Nasal congestion [Recovering/Resolving]
  - Cough [Recovering/Resolving]

NARRATIVE: CASE EVENT DATE: 20230212
